FAERS Safety Report 21278709 (Version 6)
Quarter: 2025Q2

REPORT INFORMATION
  Report Type: Report from Study
  Country: FR (occurrence: FR)
  Receive Date: 20220901
  Receipt Date: 20250411
  Transmission Date: 20250716
  Serious: Yes (Other)
  Sender: CSL BEHRING
  Company Number: FR-BEH-2022149147

PATIENT
  Age: 60 Year
  Sex: Male
  Weight: 80 kg

DRUGS (2)
  1. HIZENTRA [Suspect]
     Active Substance: HUMAN IMMUNOGLOBULIN G
     Indication: Chronic inflammatory demyelinating polyradiculoneuropathy
     Dosage: 30 GRAM, QW
     Route: 058
     Dates: start: 20220616
  2. IRBESARTAN [Concomitant]
     Active Substance: IRBESARTAN

REACTIONS (4)
  - Therapeutic product effect incomplete [Recovering/Resolving]
  - Chronic inflammatory demyelinating polyradiculoneuropathy [Recovering/Resolving]
  - Drug ineffective [Not Recovered/Not Resolved]
  - Abdominal distension [Not Recovered/Not Resolved]

NARRATIVE: CASE EVENT DATE: 20220601
